FAERS Safety Report 13254409 (Version 1)
Quarter: 2017Q1

REPORT INFORMATION
  Report Type: Spontaneous
  Country: GB (occurrence: GB)
  Receive Date: 20170221
  Receipt Date: 20170221
  Transmission Date: 20170428
  Serious: Yes (Other)
  Sender: FDA-Public Use
  Company Number: GB-SUN PHARMACEUTICAL INDUSTRIES LTD-2017RR-133767

PATIENT
  Age: 27 Year
  Sex: Male

DRUGS (4)
  1. OCTREOTIDE. [Suspect]
     Active Substance: OCTREOTIDE
     Indication: ACROMEGALY
     Route: 065
  2. LANREOTIDE [Suspect]
     Active Substance: LANREOTIDE
     Indication: PRODUCT USED FOR UNKNOWN INDICATION
     Route: 065
     Dates: end: 2013
  3. OCTREOTIDE. [Suspect]
     Active Substance: OCTREOTIDE
     Indication: PITUITARY TUMOUR BENIGN
  4. CABERGOLINE. [Suspect]
     Active Substance: CABERGOLINE
     Indication: PRODUCT USED FOR UNKNOWN INDICATION
     Route: 065

REACTIONS (17)
  - Osteoarthritis [Unknown]
  - Systolic dysfunction [Unknown]
  - Diarrhoea [Unknown]
  - Obesity [Unknown]
  - Headache [Unknown]
  - Type 2 diabetes mellitus [Unknown]
  - Hyperhidrosis [Unknown]
  - Therapeutic response decreased [Unknown]
  - Diastolic dysfunction [Unknown]
  - IIIrd nerve paralysis [Unknown]
  - Hypothyroidism [Unknown]
  - Sleep apnoea syndrome [Unknown]
  - Cardiac failure [Unknown]
  - Hypertension [Unknown]
  - Hypogonadism [Unknown]
  - Neoplasm progression [Unknown]
  - Respiratory failure [Unknown]
